FAERS Safety Report 8327672-3 (Version None)
Quarter: 2012Q2

REPORT INFORMATION
  Report Type: 
  Country: None (occurrence: None)
  Receive Date: 20120502
  Receipt Date: 20120424
  Transmission Date: 20120825
  Serious: No
  Sender: FDA-Public Use
  Company Number: US-PFIZER INC-2012103760

PATIENT
  Sex: Female

DRUGS (1)
  1. DETROL [Suspect]
     Dosage: 2 MG, 2X/DAY
     Route: 048

REACTIONS (6)
  - POLLAKIURIA [None]
  - HEADACHE [None]
  - MICTURITION URGENCY [None]
  - VISUAL IMPAIRMENT [None]
  - ABDOMINAL PAIN UPPER [None]
  - PAIN IN EXTREMITY [None]
